FAERS Safety Report 17399841 (Version 8)
Quarter: 2020Q3

REPORT INFORMATION
  Report Type: Report from Study
  Country: None (occurrence: NL)
  Receive Date: 20200211
  Receipt Date: 20200722
  Transmission Date: 20201102
  Serious: Yes (Hospitalization)
  Sender: FDA-Public Use
  Company Number: NL-ABBVIE-20K-114-3263988-00

PATIENT
  Sex: Male

DRUGS (2)
  1. DOMPERIDONE [Concomitant]
     Active Substance: DOMPERIDONE
     Indication: PRODUCT USED FOR UNKNOWN INDICATION
     Dates: end: 202005
  2. DUODOPA [Suspect]
     Active Substance: CARBIDOPA\LEVODOPA
     Indication: PARKINSON^S DISEASE
     Dosage: MD: 7, CD: 7.5, ED: 5, CND: 5.5
     Route: 050
     Dates: start: 20200106

REACTIONS (31)
  - Balance disorder [Not Recovered/Not Resolved]
  - Faeces hard [Not Recovered/Not Resolved]
  - Device intolerance [Not Recovered/Not Resolved]
  - Gastrointestinal pain [Recovered/Resolved]
  - Food intolerance [Recovering/Resolving]
  - Fibroma [Recovering/Resolving]
  - Hypophagia [Unknown]
  - Fluid intake reduced [Not Recovered/Not Resolved]
  - On and off phenomenon [Not Recovered/Not Resolved]
  - Stress [Not Recovered/Not Resolved]
  - Inflammation [Recovered/Resolved]
  - Loss of personal independence in daily activities [Not Recovered/Not Resolved]
  - Parkinson^s disease [Recovering/Resolving]
  - Stoma site extravasation [Not Recovered/Not Resolved]
  - Tension [Not Recovered/Not Resolved]
  - Weight decreased [Recovered/Resolved]
  - Ageusia [Recovered/Resolved]
  - Stoma site inflammation [Not Recovered/Not Resolved]
  - Dyskinesia [Recovering/Resolving]
  - Panic reaction [Recovered/Resolved]
  - Pharyngeal disorder [Not Recovered/Not Resolved]
  - Device breakage [Recovered/Resolved]
  - Intussusception [Recovered/Resolved]
  - Stoma site pain [Recovering/Resolving]
  - Abdominal pain upper [Recovered/Resolved]
  - Initial insomnia [Not Recovered/Not Resolved]
  - Gastrointestinal pain [Not Recovered/Not Resolved]
  - Weight decreased [Recovering/Resolving]
  - Hyperkinesia [Not Recovered/Not Resolved]
  - Stoma site erythema [Not Recovered/Not Resolved]
  - Sleep disorder [Not Recovered/Not Resolved]

NARRATIVE: CASE EVENT DATE: 2020
